FAERS Safety Report 19396149 (Version 2)
Quarter: 2021Q2

REPORT INFORMATION
  Report Type: Spontaneous
  Country: FR (occurrence: FR)
  Receive Date: 20210610
  Receipt Date: 20210629
  Transmission Date: 20210717
  Serious: Yes (Hospitalization, Other)
  Sender: FDA-Public Use
  Company Number: FR-AUROBINDO-AUR-APL-2021-023569

PATIENT
  Age: 22 Year
  Sex: Male
  Weight: 70 kg

DRUGS (1)
  1. CLOZAPINE ARROW 100MG TABLETS SCORED [Suspect]
     Active Substance: CLOZAPINE
     Indication: SCHIZOPHRENIA
     Dosage: 3 DOSAGE FORM OF 100 MG
     Route: 048
     Dates: start: 20210427

REACTIONS (5)
  - Incorrect dosage administered [Recovered/Resolved]
  - Hypertension [Recovered/Resolved]
  - Dystonia [Recovered/Resolved]
  - Tachycardia [Recovered/Resolved]
  - Product dosage form confusion [Recovered/Resolved]

NARRATIVE: CASE EVENT DATE: 20210427
